FAERS Safety Report 16742843 (Version 2)
Quarter: 2019Q3

REPORT INFORMATION
  Report Type: Spontaneous
  Country: CA (occurrence: CA)
  Receive Date: 20190826
  Receipt Date: 20190924
  Transmission Date: 20191005
  Serious: Yes (Other)
  Sender: FDA-Public Use
  Company Number: CA-CELLTRION INC.-2018CA021814

PATIENT

DRUGS (16)
  1. INFLECTRA [Suspect]
     Active Substance: INFLIXIMAB-DYYB
     Dosage: 500 MG, (500 MG/Q , 2, 6 WEEKS, AND THEN EVERY 8 WEEKS)
     Route: 042
     Dates: start: 20180726
  2. INFLECTRA [Suspect]
     Active Substance: INFLIXIMAB-DYYB
     Dosage: 500 MG/Q , 2, 6 WEEKS, AND THEN EVERY 8 WEEKS)
     Route: 042
     Dates: start: 20190110
  3. PREDNISONE. [Concomitant]
     Active Substance: PREDNISONE
     Dosage: 40 MG, DAILY (WEANING)
     Route: 048
  4. INFLECTRA [Suspect]
     Active Substance: INFLIXIMAB-DYYB
     Dosage: 500 MG/Q , 2, 6 WEEKS, AND THEN EVERY 8 WEEKS)
     Route: 042
     Dates: start: 20180913
  5. INFLECTRA [Suspect]
     Active Substance: INFLIXIMAB-DYYB
     Dosage: 500 MG EVERY 4 WEEKS
     Route: 042
     Dates: start: 20190812
  6. INFLECTRA [Suspect]
     Active Substance: INFLIXIMAB-DYYB
     Dosage: 500 MG EVERY 4 WEEKS
     Route: 042
     Dates: start: 20190912
  7. INFLECTRA [Suspect]
     Active Substance: INFLIXIMAB-DYYB
     Dosage: 500 MG EVERY 4 WEEKS
     Route: 042
     Dates: start: 20190424
  8. INFLECTRA [Suspect]
     Active Substance: INFLIXIMAB-DYYB
     Indication: CROHN^S DISEASE
     Dosage: 500 MG/Q , 2, 6 WEEKS, AND THEN EVERY 8 WEEKS)
     Route: 042
     Dates: start: 20180411, end: 20190305
  9. INFLECTRA [Suspect]
     Active Substance: INFLIXIMAB-DYYB
     Dosage: 500 MG/Q , 2, 6 WEEKS, AND THEN EVERY 8 WEEKS)
     Route: 042
     Dates: start: 20180913
  10. IMURAN [Concomitant]
     Active Substance: AZATHIOPRINE
     Dosage: 15 MG, DAILY (INCREASING WEEKLY)
     Route: 048
  11. INFLECTRA [Suspect]
     Active Substance: INFLIXIMAB-DYYB
     Dosage: 500 MG, (500 MG/Q , 2, 6 WEEKS, AND THEN EVERY 8 WEEKS)
     Route: 042
     Dates: start: 20180726
  12. INFLECTRA [Suspect]
     Active Substance: INFLIXIMAB-DYYB
     Dosage: 500 MG/Q , 2, 6 WEEKS, AND THEN EVERY 8 WEEKS)
     Route: 042
     Dates: start: 20180726
  13. INFLECTRA [Suspect]
     Active Substance: INFLIXIMAB-DYYB
     Dosage: 500 MG/Q , 2, 6 WEEKS, AND THEN EVERY 8 WEEKS)
     Route: 042
     Dates: start: 20181115
  14. INFLECTRA [Suspect]
     Active Substance: INFLIXIMAB-DYYB
     Dosage: 500 MG/Q , 2, 6 WEEKS, AND THEN EVERY 8 WEEKS)
     Route: 042
     Dates: start: 20190305
  15. HUMIRA [Concomitant]
     Active Substance: ADALIMUMAB
     Dosage: 40 MG, WEEKLY
     Route: 058
  16. PAXIL [PIROXICAM] [Concomitant]
     Active Substance: PIROXICAM
     Dosage: 15 MG, DAILY
     Route: 048

REACTIONS (7)
  - Condition aggravated [Recovering/Resolving]
  - Tooth infection [Recovering/Resolving]
  - Crohn^s disease [Recovering/Resolving]
  - Drug level below therapeutic [Unknown]
  - Off label use [Unknown]
  - Intentional product use issue [Unknown]
  - Inappropriate schedule of product administration [Unknown]

NARRATIVE: CASE EVENT DATE: 20180913
